FAERS Safety Report 20763595 (Version 3)
Quarter: 2022Q2

REPORT INFORMATION
  Report Type: Report from Study
  Country: CN (occurrence: CN)
  Receive Date: 20220428
  Receipt Date: 20220510
  Transmission Date: 20220721
  Serious: Yes (Hospitalization)
  Sender: FDA-Public Use
  Company Number: CN-DSJP-DSE-2022-111839

PATIENT
  Age: 71 Year
  Sex: Female
  Weight: 52 kg

DRUGS (4)
  1. EDOXABAN [Suspect]
     Active Substance: EDOXABAN
     Indication: Atrial fibrillation
     Dosage: 30 MG, QD
     Route: 048
     Dates: start: 20210514, end: 20220331
  2. BISOPROLOL FUMARATE [Concomitant]
     Active Substance: BISOPROLOL FUMARATE
     Indication: Coronary artery disease
     Dosage: 5 MG, QD
     Route: 048
     Dates: start: 20210513
  3. IRON [Concomitant]
     Active Substance: IRON
     Indication: Iron deficiency anaemia
     Dosage: 0.15 G, QD
     Route: 048
     Dates: start: 20210820
  4. POTASSIUM CHLORIDE [Concomitant]
     Active Substance: POTASSIUM CHLORIDE
     Indication: Hypokalaemia
     Dosage: 0.5 G, BID
     Route: 048
     Dates: start: 20210820

REACTIONS (7)
  - Anaemia [Recovered/Resolved]
  - Dyspnoea [Not Recovered/Not Resolved]
  - Gastrointestinal haemorrhage [Unknown]
  - Anaemia [Recovering/Resolving]
  - Haemorrhoids [Recovered/Resolved]
  - Hypokalaemia [Recovering/Resolving]
  - Chronic gastritis [Recovering/Resolving]

NARRATIVE: CASE EVENT DATE: 20210811
